FAERS Safety Report 18267489 (Version 1)
Quarter: 2020Q3

REPORT INFORMATION
  Report Type: Spontaneous
  Country: US (occurrence: US)
  Receive Date: 20200915
  Receipt Date: 20200915
  Transmission Date: 20201103
  Serious: Yes (Other)
  Sender: FDA-Public Use
  Company Number: US-LUPIN PHARMACEUTICALS INC.-2020-02804

PATIENT
  Sex: Female

DRUGS (1)
  1. MISOPROSTOL TABLET, 0.2 MG [Suspect]
     Active Substance: MISOPROSTOL
     Indication: POSTPARTUM HAEMORRHAGE
     Dosage: UNK (FROM 600 MCG?1000 MCG)
     Route: 065

REACTIONS (7)
  - Body temperature increased [Recovered/Resolved]
  - Chills [Recovered/Resolved]
  - Product quality issue [Unknown]
  - Pain [Recovered/Resolved]
  - Abdominal pain [Recovered/Resolved]
  - Dyspnoea [Recovered/Resolved]
  - Off label use [Unknown]
